FAERS Safety Report 15363105 (Version 3)
Quarter: 2018Q3

REPORT INFORMATION
  Report Type: Report from Study
  Country: DE (occurrence: DE)
  Receive Date: 20180907
  Receipt Date: 20180918
  Transmission Date: 20181010
  Serious: No
  Sender: FDA-Public Use
  Company Number: DE-PFIZER INC-2018355102

PATIENT

DRUGS (1)
  1. IBUPROFEN. [Suspect]
     Active Substance: IBUPROFEN
     Indication: ALLERGY TEST
     Dosage: UNK
     Route: 048

REACTIONS (1)
  - Urticaria [Unknown]
